FAERS Safety Report 5479031-9 (Version None)
Quarter: 2007Q4

REPORT INFORMATION
  Report Type: 
  Country: None (occurrence: None)
  Receive Date: 20071006
  Receipt Date: 20070925
  Transmission Date: 20080405
  Serious: Yes (Other)
  Sender: FDA-Public Use
  Company Number: GB-PFIZER INC-2007080589

PATIENT
  Age: 48 Year
  Sex: Male

DRUGS (2)
  1. VARENICLINE TABLETS [Suspect]
     Indication: SMOKING CESSATION THERAPY
     Route: 048
     Dates: start: 20070604, end: 20070709
  2. IBUPROFEN [Concomitant]
     Indication: PAIN
     Dosage: DAILY DOSE:400MG
     Route: 048

REACTIONS (1)
  - APHTHOUS STOMATITIS [None]
